FAERS Safety Report 23847625 (Version 1)
Quarter: 2024Q2

REPORT INFORMATION
  Report Type: Spontaneous
  Country: US (occurrence: US)
  Receive Date: 20240513
  Receipt Date: 20240513
  Transmission Date: 20240716
  Serious: Yes (Other)
  Sender: FDA-Public Use
  Company Number: US-MYLANLABS-2024M1041654

PATIENT
  Age: 54 Year
  Sex: Female
  Weight: 56.23 kg

DRUGS (5)
  1. CELECOXIB [Suspect]
     Active Substance: CELECOXIB
     Indication: Product used for unknown indication
     Dosage: UNK
     Route: 065
  2. ALPRAZOLAM [Suspect]
     Active Substance: ALPRAZOLAM
     Indication: Product used for unknown indication
     Dosage: UNK
     Route: 065
  3. SERTRALINE [Suspect]
     Active Substance: SERTRALINE HYDROCHLORIDE
     Indication: Product used for unknown indication
     Dosage: UNK
     Route: 065
  4. GABAPENTIN [Suspect]
     Active Substance: GABAPENTIN
     Indication: Product used for unknown indication
     Dosage: UNK
     Route: 065
  5. EFFEXOR [Suspect]
     Active Substance: VENLAFAXINE HYDROCHLORIDE
     Indication: Product used for unknown indication
     Dosage: 150 MILLIGRAM, QD
     Route: 065
     Dates: start: 20110930

REACTIONS (19)
  - Contusion [Unknown]
  - Panic reaction [Unknown]
  - Atrophy [Unknown]
  - Back pain [Not Recovered/Not Resolved]
  - Arthralgia [Unknown]
  - Insomnia [Unknown]
  - Substance-induced psychotic disorder [Unknown]
  - Joint effusion [Unknown]
  - Somatic symptom disorder [Unknown]
  - Muscle spasms [Unknown]
  - Asthenia [Unknown]
  - Bursitis [Unknown]
  - Osteoporosis [Unknown]
  - Depression [Unknown]
  - Myofascial pain syndrome [Unknown]
  - Social avoidant behaviour [Unknown]
  - Anxiety disorder [Unknown]
  - Fall [Unknown]
  - Therapy non-responder [Unknown]

NARRATIVE: CASE EVENT DATE: 20111116
